FAERS Safety Report 5119223-1 (Version None)
Quarter: 2006Q4

REPORT INFORMATION
  Report Type: 
  Country: None (occurrence: None)
  Receive Date: 20061003
  Receipt Date: 20060921
  Transmission Date: 20070319
  Serious: Yes (Other)
  Sender: FDA-Public Use
  Company Number: GB-JNJFOC-20060803429

PATIENT
  Sex: Male
  Weight: 117 kg

DRUGS (2)
  1. RISPERDAL [Suspect]
     Indication: SCHIZOPHRENIA
     Route: 065
  2. RISPERDAL [Suspect]

REACTIONS (10)
  - BLISTER [None]
  - CARDIAC DISORDER [None]
  - FATIGUE [None]
  - GASTROOESOPHAGEAL REFLUX DISEASE [None]
  - INITIAL INSOMNIA [None]
  - LETHARGY [None]
  - NEURODERMATITIS [None]
  - SKIN ULCER [None]
  - SOMNOLENCE [None]
  - WEIGHT INCREASED [None]
